FAERS Safety Report 4592832-4 (Version None)
Quarter: 2005Q2

REPORT INFORMATION
  Report Type: 
  Country: None (occurrence: None)
  Receive Date: 20050222
  Receipt Date: 20050216
  Transmission Date: 20051028
  Serious: Yes (Hospitalization, Other)
  Sender: FDA-Public Use
  Company Number: HQWYE355316FEB05

PATIENT
  Age: 37 Year
  Sex: Female

DRUGS (7)
  1. ADVIL [Suspect]
     Indication: EAR PAIN
     Dosage: 400 MG 3X PER 1 DAY
     Route: 048
     Dates: start: 20041230, end: 20050108
  2. ADVIL [Suspect]
     Indication: PHARYNGOLARYNGEAL PAIN
     Dosage: 400 MG 3X PER 1 DAY
     Route: 048
     Dates: start: 20041230, end: 20050108
  3. AUGMENTIN '125' [Suspect]
     Indication: EAR PAIN
     Dosage: ^500 MG 2 TABLETS DAILY^
     Dates: start: 20041230, end: 20050108
  4. AUGMENTIN '125' [Suspect]
     Indication: PHARYNGOLARYNGEAL PAIN
     Dosage: ^500 MG 2 TABLETS DAILY^
     Dates: start: 20041230, end: 20050108
  5. EUPANTOL (PANTOPRAZOLE) [Suspect]
     Dosage: 20 MG 1X PER 1 DAY
     Dates: start: 20041213, end: 20050111
  6. OROKEN (CEFIXIME) [Suspect]
     Indication: EAR PAIN
     Dosage: 400 MG 1X PER 1 DAY
     Dates: start: 20041213, end: 20041222
  7. OROKEN (CEFIXIME) [Suspect]
     Indication: PHARYNGOLARYNGEAL PAIN
     Dosage: 400 MG 1X PER 1 DAY
     Dates: start: 20041213, end: 20041222

REACTIONS (4)
  - ECZEMA [None]
  - PRURITUS [None]
  - PURULENT DISCHARGE [None]
  - SKIN FISSURES [None]
